FAERS Safety Report 12655155 (Version 1)
Quarter: 2016Q3

REPORT INFORMATION
  Report Type: Report from Study
  Country: CA (occurrence: CA)
  Receive Date: 20160816
  Receipt Date: 20160816
  Transmission Date: 20161109
  Serious: Yes (Other)
  Sender: FDA-Public Use
  Company Number: CA-JNJFOC-20160808410

PATIENT
  Age: 58 Year
  Sex: Female
  Weight: 69.4 kg

DRUGS (10)
  1. REMICADE [Suspect]
     Active Substance: INFLIXIMAB
     Indication: PSORIATIC ARTHROPATHY
     Route: 042
     Dates: start: 20111114
  2. REMICADE [Suspect]
     Active Substance: INFLIXIMAB
     Indication: PSORIATIC ARTHROPATHY
     Dosage: 40TH INFUSION
     Route: 042
     Dates: start: 20160809
  3. REMICADE [Suspect]
     Active Substance: INFLIXIMAB
     Indication: PSORIATIC ARTHROPATHY
     Dosage: 37TH INFUSION
     Route: 042
     Dates: start: 20160420
  4. APO TRIAZIDE [Concomitant]
     Route: 065
  5. MAVIK [Concomitant]
     Active Substance: TRANDOLAPRIL
     Route: 065
  6. METHOTREXATE. [Concomitant]
     Active Substance: METHOTREXATE
     Dosage: 6 TABLETS
     Route: 065
  7. REMICADE [Suspect]
     Active Substance: INFLIXIMAB
     Indication: PSORIATIC ARTHROPATHY
     Dosage: 38TH INFUSION
     Route: 042
     Dates: start: 20160601
  8. REMICADE [Suspect]
     Active Substance: INFLIXIMAB
     Indication: PSORIATIC ARTHROPATHY
     Dosage: 36TH INFUSION
     Route: 042
     Dates: start: 20160309
  9. REMICADE [Suspect]
     Active Substance: INFLIXIMAB
     Indication: PSORIATIC ARTHROPATHY
     Dosage: 39TH INFUSION
     Route: 042
     Dates: start: 20160706
  10. NITROSPRAY [Concomitant]
     Route: 065

REACTIONS (4)
  - Rectal neoplasm [Recovered/Resolved]
  - Product use issue [Unknown]
  - Cyst [Unknown]
  - Off label use [Unknown]

NARRATIVE: CASE EVENT DATE: 20111114
